FAERS Safety Report 19087686 (Version 1)
Quarter: 2021Q2

REPORT INFORMATION
  Report Type: Spontaneous
  Country: ES (occurrence: ES)
  Receive Date: 20210402
  Receipt Date: 20210402
  Transmission Date: 20210717
  Serious: Yes (Hospitalization, Other)
  Sender: FDA-Public Use
  Company Number: ES-BRISTOL-MYERS SQUIBB COMPANY-BMS-2021-030618

PATIENT
  Age: 71 Year
  Sex: Female

DRUGS (1)
  1. NIVOLUMAB [Suspect]
     Active Substance: NIVOLUMAB
     Indication: SQUAMOUS CELL CARCINOMA
     Dosage: UNAVAILABLE
     Route: 065
     Dates: start: 202001, end: 202003

REACTIONS (4)
  - Transaminases increased [Recovered/Resolved]
  - Blood creatinine increased [Recovered/Resolved]
  - Intentional product use issue [Unknown]
  - Postoperative wound infection [Unknown]
